FAERS Safety Report 25361385 (Version 2)
Quarter: 2025Q2

REPORT INFORMATION
  Report Type: Spontaneous
  Country: JP (occurrence: JP)
  Receive Date: 20250527
  Receipt Date: 20250630
  Transmission Date: 20250716
  Serious: Yes (Hospitalization, Other)
  Sender: GILEAD
  Company Number: JP-GILEAD-2025-0714391

PATIENT
  Sex: Female

DRUGS (5)
  1. TRODELVY [Suspect]
     Active Substance: SACITUZUMAB GOVITECAN-HZIY
     Indication: Triple negative breast cancer
     Route: 065
     Dates: start: 20250207, end: 2025
  2. TRODELVY [Suspect]
     Active Substance: SACITUZUMAB GOVITECAN-HZIY
     Route: 065
     Dates: start: 2025, end: 2025
  3. TRODELVY [Suspect]
     Active Substance: SACITUZUMAB GOVITECAN-HZIY
     Route: 065
     Dates: start: 2025, end: 2025
  4. TRODELVY [Suspect]
     Active Substance: SACITUZUMAB GOVITECAN-HZIY
     Route: 065
     Dates: start: 2025
  5. PEGFILGRASTIM [Concomitant]
     Active Substance: PEGFILGRASTIM

REACTIONS (2)
  - Neutropenia [Unknown]
  - Epilepsy [Unknown]

NARRATIVE: CASE EVENT DATE: 20250101
